FAERS Safety Report 9065524 (Version 1)
Quarter: 2013Q1

REPORT INFORMATION
  Report Type: Spontaneous
  Country: US (occurrence: US)
  Receive Date: 20130206
  Receipt Date: 20130206
  Transmission Date: 20140127
  Serious: Yes (Other)
  Sender: FDA-Public Use
  Company Number: US-SHIRE-ALL1-2013-00473

PATIENT
  Sex: Male
  Weight: 90.7 kg

DRUGS (5)
  1. INTUNIV [Suspect]
     Indication: ATTENTION DEFICIT/HYPERACTIVITY DISORDER
     Dosage: 3 MG, 1X/DAY:QD
     Route: 048
     Dates: start: 201207, end: 201207
  2. INTUNIV [Suspect]
     Dosage: 2 MG, 1X/DAY:QD
     Route: 048
     Dates: start: 2012, end: 201207
  3. INTUNIV [Suspect]
     Dosage: 1 MG, 1X/DAY:QD
     Route: 048
     Dates: start: 201205, end: 2012
  4. ABILIFY [Concomitant]
     Indication: AGGRESSION
     Dosage: 15 MG, 1X/DAY:QD
     Route: 048
     Dates: start: 2010
  5. ABILIFY [Concomitant]
     Indication: AUTISM

REACTIONS (4)
  - Loss of consciousness [Recovered/Resolved]
  - Tremor [Recovered/Resolved]
  - Asthenia [Recovered/Resolved]
  - Dizziness [Recovered/Resolved]
